FAERS Safety Report 6380228-4 (Version None)
Quarter: 2009Q3

REPORT INFORMATION
  Report Type: 
  Country: None (occurrence: None)
  Receive Date: 20090923
  Receipt Date: 20090909
  Transmission Date: 20100115
  Serious: Yes (Other)
  Sender: FDA-Public Use
  Company Number: IND1-UK-2009-0029

PATIENT
  Age: 7 Year
  Sex: Male

DRUGS (3)
  1. DICLOFENAC SODIUM [Suspect]
     Indication: POSTOPERATIVE CARE
     Dosage: RECTAL
     Route: 054
  2. IBUPROFEN [Suspect]
     Dosage: 10 MG/KG (1 IN 8 HR)
  3. INDOMETHACIN [Suspect]
     Dosage: 25 MG (1  IN 12 HR)

REACTIONS (1)
  - RENAL FAILURE ACUTE [None]
